FAERS Safety Report 19038159 (Version 1)
Quarter: 2021Q1

REPORT INFORMATION
  Report Type: Spontaneous
  Country: US (occurrence: US)
  Receive Date: 20210322
  Receipt Date: 20210322
  Transmission Date: 20210420
  Serious: Yes (Life-Threatening, Hospitalization, Other)
  Sender: FDA-Public Use
  Company Number: US-JUBILANT CADISTA PHARMACEUTICALS-2021JUB00078

PATIENT
  Age: 48 Year
  Sex: Male

DRUGS (1)
  1. BUPROPION XL [Suspect]
     Active Substance: BUPROPION
     Indication: SUICIDE ATTEMPT
     Dosage: 90 TABLETS
     Route: 048

REACTIONS (5)
  - Suicide attempt [Recovered/Resolved]
  - Status epilepticus [Recovered/Resolved]
  - Chest discomfort [Recovered/Resolved]
  - Areflexia [Recovered/Resolved]
  - Electrocardiogram QT prolonged [Recovered/Resolved]
